FAERS Safety Report 18942291 (Version 1)
Quarter: 2021Q1

REPORT INFORMATION
  Report Type: Spontaneous
  Country: US (occurrence: US)
  Receive Date: 20210225
  Receipt Date: 20210225
  Transmission Date: 20210420
  Serious: Yes (Death)
  Sender: FDA-Public Use
  Company Number: US-OTSUKA-2021_003683

PATIENT
  Age: 60 Year
  Sex: Male

DRUGS (1)
  1. NUEDEXTA [Suspect]
     Active Substance: DEXTROMETHORPHAN HYDROBROMIDE\QUINIDINE SULFATE
     Indication: AFFECT LABILITY
     Dosage: 1 DF (20/10 MG), UNK
     Route: 065

REACTIONS (6)
  - Balance disorder [Unknown]
  - Coordination abnormal [Unknown]
  - Death [Fatal]
  - Neuropathy peripheral [Unknown]
  - Fall [Unknown]
  - Dizziness [Unknown]
